FAERS Safety Report 16342795 (Version 2)
Quarter: 2019Q2

REPORT INFORMATION
  Report Type: Spontaneous
  Country: IT (occurrence: IT)
  Receive Date: 20190522
  Receipt Date: 20190611
  Transmission Date: 20190711
  Serious: Yes (Death)
  Sender: FDA-Public Use
  Company Number: IT-ABBVIE-19K-083-2792939-00

PATIENT
  Age: 68 Year
  Sex: Male

DRUGS (5)
  1. PLETAL [Concomitant]
     Active Substance: CILOSTAZOL
     Indication: PRODUCT USED FOR UNKNOWN INDICATION
  2. MIMPARA [Concomitant]
     Active Substance: CINACALCET HYDROCHLORIDE
     Indication: PRODUCT USED FOR UNKNOWN INDICATION
  3. BISOPROLOL [Concomitant]
     Active Substance: BISOPROLOL
     Indication: PRODUCT USED FOR UNKNOWN INDICATION
  4. MAVIRET [Suspect]
     Active Substance: GLECAPREVIR\PIBRENTASVIR
     Indication: HEPATITIS C
     Dosage: 100MG/40MG
     Route: 048
     Dates: start: 20190309, end: 20190416
  5. COUMADIN [Concomitant]
     Active Substance: WARFARIN SODIUM
     Indication: PRODUCT USED FOR UNKNOWN INDICATION

REACTIONS (7)
  - Right ventricular failure [Fatal]
  - Aspartate aminotransferase increased [Unknown]
  - Malaise [Fatal]
  - Hypotension [Fatal]
  - Metabolic acidosis [Unknown]
  - Respiratory acidosis [Unknown]
  - Alanine aminotransferase increased [Unknown]

NARRATIVE: CASE EVENT DATE: 20190416
